FAERS Safety Report 5169907-4 (Version None)
Quarter: 2006Q4

REPORT INFORMATION
  Report Type: 
  Country: None (occurrence: None)
  Receive Date: 20061212
  Receipt Date: 20061127
  Transmission Date: 20070319
  Serious: Yes (Hospitalization)
  Sender: FDA-Public Use
  Company Number: US-ELI_LILLY_AND_COMPANY-US200611004911

PATIENT
  Sex: Female

DRUGS (2)
  1. CYMBALTA [Suspect]
     Indication: DEPRESSION
     Dosage: 60 MG, 2/D
     Dates: start: 20060101, end: 20061120
  2. WELLBUTRIN [Concomitant]
     Dosage: 150 MG, 2/D

REACTIONS (3)
  - DYSPEPSIA [None]
  - GASTRIC BYPASS [None]
  - MALAISE [None]
